FAERS Safety Report 8066059-8 (Version None)
Quarter: 2012Q1

REPORT INFORMATION
  Report Type: 
  Country: None (occurrence: None)
  Receive Date: 20120124
  Receipt Date: 20120118
  Transmission Date: 20120608
  Serious: Yes (Hospitalization)
  Sender: FDA-Public Use
  Company Number: US-JNJFOC-20120107795

PATIENT
  Sex: Female

DRUGS (1)
  1. STELARA [Suspect]
     Indication: PSORIASIS
     Route: 058
     Dates: start: 20111122

REACTIONS (5)
  - ARTHRALGIA [None]
  - HEADACHE [None]
  - HYPERSENSITIVITY [None]
  - PAIN [None]
  - GRAND MAL CONVULSION [None]
